FAERS Safety Report 4330503-X (Version None)
Quarter: 2004Q1

REPORT INFORMATION
  Report Type: 
  Country: None (occurrence: None)
  Receive Date: 20040329
  Receipt Date: 20040315
  Transmission Date: 20041129
  Serious: Yes (Hospitalization)
  Sender: FDA-Public Use
  Company Number: 2004204695CH

PATIENT
  Sex: Male
  Weight: 100 kg

DRUGS (13)
  1. DEPO-MEDROL [Suspect]
     Indication: NEUROPATHIC PAIN
     Dosage: LUMBAR INFILTRATION
     Dates: start: 20031101, end: 20031201
  2. ROFECOXIB(ROFECOXIB) TABLET, 50MG [Suspect]
     Indication: ARTHRALGIA
     Dosage: 50 MG, QD, ORAL
     Route: 048
     Dates: start: 20040125, end: 20040206
  3. SINTROM [Suspect]
     Indication: CARDIAC FAILURE
     Dosage: ORAL
     Route: 048
     Dates: end: 20040306
  4. FERRO-GRADUMET TABLET [Concomitant]
  5. DIGOXINE TABLET [Concomitant]
  6. RENITEN TABLET [Concomitant]
  7. ALDACTONE TABLET [Concomitant]
  8. TOREM TABLET [Concomitant]
  9. ELTROXIN (LEVOTHYROXINE SODIUM) TABLET [Concomitant]
  10. AMARYL [Concomitant]
  11. NITRODERM TS PATCH [Concomitant]
  12. MOLSIDOMINE TABLET [Concomitant]
  13. RIVOTRIL [Concomitant]

REACTIONS (6)
  - ANAEMIA [None]
  - ARTHRALGIA [None]
  - DYSPNOEA [None]
  - GASTRIC HAEMORRHAGE [None]
  - GASTRITIS EROSIVE [None]
  - OESOPHAGITIS [None]
